FAERS Safety Report 5124919-1 (Version None)
Quarter: 2006Q4

REPORT INFORMATION
  Report Type: 
  Country: None (occurrence: None)
  Receive Date: 20061011
  Receipt Date: 20060929
  Transmission Date: 20070319
  Serious: Yes (Hospitalization)
  Sender: FDA-Public Use
  Company Number: DE-BRISTOL-MYERS SQUIBB COMPANY-13531421

PATIENT
  Age: 75 Year
  Sex: Male

DRUGS (2)
  1. MITOMYCIN-C BULK POWDER [Suspect]
     Indication: NON-SMALL CELL LUNG CANCER
     Route: 042
     Dates: start: 20060718, end: 20060815
  2. NAVELBINE [Suspect]
     Indication: NON-SMALL CELL LUNG CANCER
     Route: 042
     Dates: start: 20060718, end: 20060815

REACTIONS (1)
  - NEPHROLITHIASIS [None]
